FAERS Safety Report 7148130-8 (Version None)
Quarter: 2010Q4

REPORT INFORMATION
  Report Type: 
  Country: None (occurrence: None)
  Receive Date: 20101209
  Receipt Date: 20101129
  Transmission Date: 20110411
  Serious: No
  Sender: FDA-Public Use
  Company Number: US-PFIZER INC-US-WYE-H18462810

PATIENT
  Sex: Female
  Weight: 68 kg

DRUGS (6)
  1. PRISTIQ [Suspect]
     Indication: DEPRESSION
     Dosage: 50 MG, 1X/DAY
     Route: 048
     Dates: start: 20100820, end: 20100823
  2. HUMIRA [Concomitant]
     Indication: PALPITATIONS
  3. CYMBALTA [Concomitant]
  4. ALLEGRA [Concomitant]
  5. METHOTREXATE [Concomitant]
  6. SIMVASTATIN [Concomitant]

REACTIONS (1)
  - PALPITATIONS [None]
